FAERS Safety Report 7086608 (Version 4)
Quarter: 2013Q1

REPORT INFORMATION
  Report Type: Spontaneous
  Country: AU (occurrence: AU)
  Receive Date: 20090820
  Receipt Date: 20130227
  Transmission Date: 20140127
  Serious: Yes (Disabling, Other)
  Sender: FDA-Public Use
  Company Number: PHHY2009AU31108

PATIENT
  Sex: Male

DRUGS (13)
  1. GLIVEC [Suspect]
     Indication: CHRONIC MYELOID LEUKAEMIA
     Dosage: 400 MG, UNK
     Route: 048
     Dates: start: 20070801, end: 201205
  2. LIPITOR [Concomitant]
     Indication: HYPERCHOLESTEROLAEMIA
     Dosage: 10 MG, QD
     Route: 048
  3. ISCOVER [Concomitant]
     Dosage: 75 MG, QD
     Route: 048
  4. VASCARDOL [Concomitant]
  5. FISH OIL [Concomitant]
  6. COQ10 [Concomitant]
  7. VITAMIN E [Concomitant]
  8. SELENIUM [Concomitant]
  9. CHONDROITIN SULFATE [Concomitant]
  10. LIPOIC ACID [Concomitant]
  11. VITAMIN D [Concomitant]
  12. PROXAN [Concomitant]
  13. CUCUMIS MELO JUICE POWDER [Concomitant]

REACTIONS (13)
  - Conjunctival disorder [Not Recovered/Not Resolved]
  - Periorbital oedema [Recovering/Resolving]
  - Hair texture abnormal [Not Recovered/Not Resolved]
  - Muscle atrophy [Not Recovered/Not Resolved]
  - Intraocular pressure increased [Not Recovered/Not Resolved]
  - Muscle spasms [Not Recovered/Not Resolved]
  - Nausea [Not Recovered/Not Resolved]
  - Myalgia [Not Recovered/Not Resolved]
  - Oedema [Recovering/Resolving]
  - Fluid retention [Not Recovered/Not Resolved]
  - Arthralgia [Not Recovered/Not Resolved]
  - Pain in extremity [Not Recovered/Not Resolved]
  - Dry skin [Not Recovered/Not Resolved]
